FAERS Safety Report 23207323 (Version 1)
Quarter: 2023Q4

REPORT INFORMATION
  Report Type: Spontaneous
  Country: US (occurrence: US)
  Receive Date: 20231120
  Receipt Date: 20231120
  Transmission Date: 20240110
  Serious: Yes (Other)
  Sender: FDA-Public Use
  Company Number: US-BRACCO-2023US00096

PATIENT
  Age: 44 Year
  Sex: Male

DRUGS (3)
  1. LUMASON [Suspect]
     Active Substance: SULFUR HEXAFLUORIDE
     Indication: Stress echocardiogram
     Dosage: 2.5 ML, SINGLE
     Route: 042
     Dates: start: 20230111, end: 20230111
  2. LUMASON [Suspect]
     Active Substance: SULFUR HEXAFLUORIDE
     Indication: Stress echocardiogram
     Dosage: 2.5 ML, SINGLE
     Route: 042
     Dates: start: 20230111, end: 20230111
  3. LUMASON [Suspect]
     Active Substance: SULFUR HEXAFLUORIDE
     Indication: Stress echocardiogram
     Dosage: 2.5 ML, SINGLE
     Route: 042
     Dates: start: 20230111, end: 20230111

REACTIONS (9)
  - Blood pressure immeasurable [Recovered/Resolved]
  - Heart rate increased [Recovered/Resolved]
  - Pulse absent [Recovered/Resolved]
  - Tongue oedema [Recovered/Resolved]
  - Erythema [Recovered/Resolved]
  - Flushing [Recovered/Resolved]
  - Hyperhidrosis [Recovered/Resolved]
  - Dyspnoea [Recovered/Resolved]
  - Incoherent [Recovered/Resolved]

NARRATIVE: CASE EVENT DATE: 20230111
